FAERS Safety Report 19040843 (Version 1)
Quarter: 2021Q1

REPORT INFORMATION
  Report Type: Spontaneous
  Country: US (occurrence: US)
  Receive Date: 20210323
  Receipt Date: 20210323
  Transmission Date: 20210420
  Serious: No
  Sender: FDA-Public Use
  Company Number: US-SA-2021SA097432

PATIENT
  Age: 58 Year
  Sex: Male

DRUGS (13)
  1. ADVIL [Concomitant]
     Active Substance: IBUPROFEN
  2. LORATADINE. [Concomitant]
     Active Substance: LORATADINE
     Indication: ANGIOEDEMA
  3. TRULICITY [Concomitant]
     Active Substance: DULAGLUTIDE
  4. ZINC. [Concomitant]
     Active Substance: ZINC
  5. ATORVASTATIN [Concomitant]
     Active Substance: ATORVASTATIN
  6. TYLENOL [Concomitant]
     Active Substance: ACETAMINOPHEN
  7. DUPIXENT [Suspect]
     Active Substance: DUPILUMAB
     Indication: CHRONIC RHINOSINUSITIS WITH NASAL POLYPS
     Dosage: 300 MG, QOW
     Route: 058
     Dates: start: 202102
  8. MONTELUKAST [Concomitant]
     Active Substance: MONTELUKAST SODIUM
  9. FARXIGA [Concomitant]
     Active Substance: DAPAGLIFLOZIN PROPANEDIOL
  10. VITAMIN D3 [Concomitant]
     Active Substance: CHOLECALCIFEROL
  11. BASAGLAR [Concomitant]
     Active Substance: INSULIN GLARGINE
  12. VASCEPA [Concomitant]
     Active Substance: ICOSAPENT ETHYL
  13. PROBIOTIC [BIFIDOBACTERIUM LACTIS] [Concomitant]
     Active Substance: BIFIDOBACTERIUM ANIMALIS LACTIS

REACTIONS (1)
  - Injection site urticaria [Recovered/Resolved]

NARRATIVE: CASE EVENT DATE: 20210312
